FAERS Safety Report 16316907 (Version 1)
Quarter: 2019Q2

REPORT INFORMATION
  Report Type: Spontaneous
  Country: IT (occurrence: IT)
  Receive Date: 20190515
  Receipt Date: 20190515
  Transmission Date: 20190711
  Serious: Yes (Other)
  Sender: FDA-Public Use
  Company Number: IT-SA-2019SA128927

PATIENT
  Age: 74 Year
  Sex: Male

DRUGS (5)
  1. CARDICOR [Concomitant]
     Active Substance: BISOPROLOL
  2. NORVASC [Concomitant]
     Active Substance: AMLODIPINE BESYLATE
     Route: 065
  3. KARVEA [Concomitant]
     Active Substance: IRBESARTAN
     Route: 065
  4. MULTAQ [Suspect]
     Active Substance: DRONEDARONE
     Indication: ARRHYTHMIA
     Dosage: 800 MG, QD
     Route: 048
     Dates: start: 20181229, end: 20190115
  5. PEPTAZOL [PANTOPRAZOLE SODIUM SESQUIHYDRATE] [Concomitant]
     Active Substance: PANTOPRAZOLE SODIUM
     Route: 065

REACTIONS (1)
  - Syncope [Recovering/Resolving]

NARRATIVE: CASE EVENT DATE: 20190115
